FAERS Safety Report 9973696 (Version 1)
Quarter: 2014Q1

REPORT INFORMATION
  Report Type: Spontaneous
  Country: US (occurrence: None)
  Receive Date: 20140214
  Receipt Date: 20140214
  Transmission Date: 20141002
  Serious: Yes (Other)
  Sender: FDA-Public Use
  Company Number: US-013423

PATIENT
  Age: 67 Year
  Sex: Female
  Weight: 45.36 kg

DRUGS (10)
  1. PICO-SALAX [Suspect]
     Indication: BOWEL PREPARATION
     Dosage: ONE PACKET AT 13:00; SECOND PACK AT 18:00. ORAL)
     Route: 048
     Dates: start: 20131023, end: 20131023
  2. COLASAL [Concomitant]
  3. PENTASA [Concomitant]
  4. HYTRIN [Concomitant]
  5. VESICARE [Concomitant]
  6. LIPITOR [Concomitant]
  7. SYNTHROID [Concomitant]
  8. ADVAIR [Concomitant]
  9. DUCLOAX [Concomitant]
  10. ZELNORMA [Concomitant]

REACTIONS (2)
  - Pollakiuria [None]
  - Drug ineffective [None]
